FAERS Safety Report 9957781 (Version 1)
Quarter: 2014Q1

REPORT INFORMATION
  Report Type: Report from Study
  Country: US (occurrence: US)
  Receive Date: 20140304
  Receipt Date: 20140304
  Transmission Date: 20141002
  Serious: No
  Sender: FDA-Public Use
  Company Number: US-ABBVIE-13P-163-1093640-00

PATIENT
  Age: 60 Year
  Sex: Female

DRUGS (6)
  1. HUMIRA [Suspect]
     Indication: PSORIASIS
     Dates: start: 20130510, end: 20130510
  2. HUMIRA [Suspect]
     Dates: start: 20130517
  3. LISINOPRIL [Concomitant]
     Indication: BLOOD PRESSURE
  4. OMEGA 3 [Concomitant]
     Indication: NUTRITIONAL SUPPLEMENTATION
     Dosage: EVERY DAY
  5. CALCIUM [Concomitant]
     Indication: MINERAL SUPPLEMENTATION
     Dosage: EVERY DAY
  6. REMIFEMIN [Concomitant]
     Indication: HOT FLUSH
     Dosage: EVERY DAY

REACTIONS (3)
  - Injection site swelling [Not Recovered/Not Resolved]
  - Injection site pruritus [Not Recovered/Not Resolved]
  - Injection site erythema [Not Recovered/Not Resolved]
